FAERS Safety Report 20193198 (Version 1)
Quarter: 2021Q4

REPORT INFORMATION
  Report Type: Report from Study
  Country: US (occurrence: US)
  Receive Date: 20211216
  Receipt Date: 20211216
  Transmission Date: 20220303
  Serious: Yes (Hospitalization)
  Sender: FDA-Public Use
  Company Number: US-ACTELION-A-NJ2016-140860

PATIENT
  Age: 71 Year
  Sex: Female
  Weight: 68.027 kg

DRUGS (8)
  1. UPTRAVI [Suspect]
     Active Substance: SELEXIPAG
     Indication: Pulmonary hypertension
     Dosage: 400 MCG, BID
     Route: 048
     Dates: start: 20160728
  2. UPTRAVI [Suspect]
     Active Substance: SELEXIPAG
     Dosage: 800 MCG, BID
     Route: 048
  3. UPTRAVI [Suspect]
     Active Substance: SELEXIPAG
     Dosage: 600 MCG, BID
     Route: 048
  4. LETAIRIS [Suspect]
     Active Substance: AMBRISENTAN
     Indication: Product used for unknown indication
     Route: 065
     Dates: start: 20151106
  5. LASIX [Suspect]
     Active Substance: FUROSEMIDE
     Indication: Product used for unknown indication
     Dosage: MONDAYS AND FRIDAYS
     Route: 065
  6. ADCIRCA [Concomitant]
     Active Substance: TADALAFIL
  7. TYVASO [Concomitant]
     Active Substance: TREPROSTINIL
  8. DIGOXIN [Concomitant]
     Active Substance: DIGOXIN

REACTIONS (14)
  - Dehydration [Recovering/Resolving]
  - Blood sodium decreased [Recovering/Resolving]
  - Malaise [Recovering/Resolving]
  - Electrolyte imbalance [Unknown]
  - Feeling hot [Unknown]
  - Headache [Recovered/Resolved]
  - Nausea [Unknown]
  - Dizziness [Unknown]
  - Pain [Recovered/Resolved]
  - Diarrhoea [Recovered/Resolved]
  - Clostridium difficile colitis [Unknown]
  - Gastrointestinal disorder [Unknown]
  - Myalgia [Unknown]
  - Walking distance test abnormal [Unknown]

NARRATIVE: CASE EVENT DATE: 20160826
